FAERS Safety Report 6984840 (Version 3)
Quarter: 2014Q2

REPORT INFORMATION
  Report Type: Spontaneous
  Country: US (occurrence: US)
  Receive Date: 20090501
  Receipt Date: 20140415
  Transmission Date: 20141212
  Serious: Yes (Hospitalization)
  Sender: FDA-Public Use
  Company Number: US-ALEXION-A200800393

PATIENT
  Age: 24 Year
  Sex: Female

DRUGS (2)
  1. SOLIRIS [Suspect]
     Indication: PAROXYSMAL NOCTURNAL HAEMOGLOBINURIA
     Dosage: UNK, UNK
     Route: 042
     Dates: start: 20081105, end: 200811
  2. SOLIRIS [Suspect]
     Dosage: UNK, UNK
     Route: 042
     Dates: start: 20081203

REACTIONS (12)
  - Neutropenia [Unknown]
  - Platelet count decreased [Unknown]
  - Catheter placement [Unknown]
  - Infection [Unknown]
  - Packed red blood cell transfusion [Unknown]
  - Platelet transfusion [Unknown]
  - Haemoglobinuria [Unknown]
  - Catheter site haemorrhage [Recovered/Resolved]
  - Catheter site swelling [Not Recovered/Not Resolved]
  - Catheter site pain [Not Recovered/Not Resolved]
  - Catheter site haematoma [Not Recovered/Not Resolved]
  - Contusion [Unknown]
